FAERS Safety Report 5266647-8 (Version None)
Quarter: 2007Q1

REPORT INFORMATION
  Report Type: 
  Country: None (occurrence: None)
  Receive Date: 20070312
  Receipt Date: 20070227
  Transmission Date: 20070707
  Serious: Yes (Hospitalization)
  Sender: FDA-Public Use
  Company Number: 2007SP003737

PATIENT
  Age: 52 Year
  Sex: Female

DRUGS (7)
  1. PEG-INTRON [Suspect]
     Indication: HEPATITIS C
     Dosage: 120 MCG QW SC
     Route: 058
     Dates: start: 20060101, end: 20070226
  2. REBETOL [Suspect]
     Indication: HEPATITIS C
     Dosage: 1000 MG QD PO
     Route: 048
     Dates: start: 20060101, end: 20070226
  3. LOCOID [Concomitant]
  4. ELOCON [Concomitant]
  5. NASONEX [Concomitant]
  6. ZOLPIDEM TARTRATE [Concomitant]
  7. ESTROGEN/PROGESTERONE [Concomitant]

REACTIONS (7)
  - DEMYELINATION [None]
  - DIPLEGIA [None]
  - HYPOAESTHESIA [None]
  - INFLAMMATION [None]
  - MULTIPLE SCLEROSIS [None]
  - NUCLEAR MAGNETIC RESONANCE IMAGING BRAIN ABNORMAL [None]
  - VASCULITIS [None]
